FAERS Safety Report 7607920-5 (Version None)
Quarter: 2011Q3

REPORT INFORMATION
  Report Type: 
  Country: None (occurrence: None)
  Receive Date: 20110714
  Receipt Date: 20091220
  Transmission Date: 20111222
  Serious: Yes (Death, Hospitalization, Other)
  Sender: FDA-Public Use
  Company Number: US-BAYER-2011-006655

PATIENT
  Age: 63 Year
  Sex: Female
  Weight: 97.4 kg

DRUGS (13)
  1. RED BLOOD CELLS [Concomitant]
     Dosage: 2 U, UNK
     Route: 042
     Dates: start: 20040518
  2. TRASYLOL [Suspect]
     Indication: CORONARY ARTERY BYPASS
     Dosage: 1 ML ONCE TEST DOSE
     Route: 042
     Dates: start: 20040518, end: 20040518
  3. LOPRESSOR [Concomitant]
  4. LIPITOR [Concomitant]
  5. VERSED [Concomitant]
     Dosage: 5
     Route: 042
     Dates: start: 20040518
  6. ACETYLSALICYLIC ACID SRT [Concomitant]
  7. ZINACEF [Concomitant]
     Dosage: 1.5 G, UNK
     Route: 042
     Dates: start: 20040518
  8. TRASYLOL [Suspect]
     Dosage: 100 ML, ONCE LOADING DOSE
     Route: 042
     Dates: start: 20040518, end: 20040518
  9. TRASYLOL [Suspect]
     Dosage: 25 ML/HR INFUSION
     Route: 042
     Dates: start: 20040518, end: 20040518
  10. LASIX [Concomitant]
     Dosage: PRIME
     Route: 042
     Dates: start: 20040518
  11. PROPOFOL [Concomitant]
     Dosage: UNK
     Route: 042
     Dates: start: 20040518
  12. TRASYLOL [Suspect]
     Dosage: 100 ML, ONCE PRIME
     Dates: start: 20040518, end: 20040518
  13. HEPARIN [Concomitant]
     Dosage: 10000 U PRIME
     Route: 042
     Dates: start: 20040518

REACTIONS (8)
  - INJURY [None]
  - ANHEDONIA [None]
  - ANXIETY [None]
  - FEAR [None]
  - DEPRESSION [None]
  - UNEVALUABLE EVENT [None]
  - RENAL FAILURE [None]
  - PAIN [None]
